FAERS Safety Report 4918255-3 (Version None)
Quarter: 2006Q1

REPORT INFORMATION
  Report Type: 
  Country: None (occurrence: None)
  Receive Date: 20060222
  Receipt Date: 20060207
  Transmission Date: 20060701
  Serious: Yes (Hospitalization, Other)
  Sender: FDA-Public Use
  Company Number: JP-SP-2006-00286

PATIENT
  Age: 68 Year
  Sex: Male

DRUGS (6)
  1. IMMUCYST [Suspect]
     Indication: BLADDER CANCER
     Route: 043
     Dates: start: 20050131, end: 20050307
  2. IMMUCYST [Suspect]
     Route: 043
     Dates: start: 20050131, end: 20050307
  3. IMMUCYST [Suspect]
     Route: 043
     Dates: start: 20050131, end: 20050307
  4. ZOLPIDEM TARTRATE [Concomitant]
     Route: 048
     Dates: start: 20050214, end: 20050328
  5. MESALAMINE [Concomitant]
     Route: 048
     Dates: start: 20050307
  6. LACTOMIN [Concomitant]
     Route: 048
     Dates: start: 20050307

REACTIONS (5)
  - DYSURIA [None]
  - EPIDIDYMITIS [None]
  - HAEMATURIA [None]
  - ORCHITIS [None]
  - SURGERY [None]
